FAERS Safety Report 7540569-1 (Version None)
Quarter: 2011Q2

REPORT INFORMATION
  Report Type: 
  Country: None (occurrence: None)
  Receive Date: 20110610
  Receipt Date: 20110603
  Transmission Date: 20111010
  Serious: Yes (Hospitalization)
  Sender: FDA-Public Use
  Company Number: B0724953A

PATIENT
  Sex: Female

DRUGS (1)
  1. AVANDIA [Suspect]
     Dosage: 8MG PER DAY
     Route: 048
     Dates: start: 19990101, end: 20060124

REACTIONS (5)
  - CARDIAC FAILURE [None]
  - CORONARY ARTERY DISEASE [None]
  - RENAL IMPAIRMENT [None]
  - FLUID RETENTION [None]
  - DYSPNOEA [None]
